FAERS Safety Report 8304301-6 (Version None)
Quarter: 2012Q2

REPORT INFORMATION
  Report Type: 
  Country: None (occurrence: None)
  Receive Date: 20120423
  Receipt Date: 20120423
  Transmission Date: 20120825
  Serious: No
  Sender: FDA-Public Use
  Company Number: None

PATIENT
  Age: 59 Year
  Sex: Male
  Weight: 63.049 kg

DRUGS (2)
  1. TAMSULOSIN HCL [Suspect]
     Indication: NEPHROLITHIASIS
     Dosage: 0.8 MG
     Route: 048
     Dates: start: 20120118, end: 20120406
  2. TAMSULOSIN HCL [Concomitant]

REACTIONS (3)
  - MYDRIASIS [None]
  - IRIS ATROPHY [None]
  - FLOPPY IRIS SYNDROME [None]
